FAERS Safety Report 13683898 (Version 3)
Quarter: 2018Q1

REPORT INFORMATION
  Report Type: Spontaneous
  Country: US (occurrence: US)
  Receive Date: 20170623
  Receipt Date: 20180123
  Transmission Date: 20180508
  Serious: No
  Sender: FDA-Public Use
  Company Number: US-PFIZER INC-2017275272

PATIENT
  Age: 49 Year
  Sex: Female

DRUGS (23)
  1. DOCETAXEL. [Suspect]
     Active Substance: DOCETAXEL
     Indication: CHEMOTHERAPY
     Dosage: 75 MG/M2, SINGLE
     Dates: start: 20140305, end: 20140305
  2. TOPAMAX [Concomitant]
     Active Substance: TOPIRAMATE
     Dosage: 100 MG, REGULARLY
     Dates: start: 2005
  3. DOCETAXEL. [Suspect]
     Active Substance: DOCETAXEL
     Dosage: 67.5 MG/M2, SINGLE
     Dates: start: 20140416, end: 20140416
  4. DOCETAXEL. [Suspect]
     Active Substance: DOCETAXEL
     Dosage: 67.5 MG/M2, SINGLE
     Dates: start: 20140515, end: 20140515
  5. WELLBUTRIN XL [Concomitant]
     Active Substance: BUPROPION HYDROCHLORIDE
     Dosage: 150 MG, REGULARLY
     Dates: start: 1984
  6. DOCETAXEL. [Suspect]
     Active Substance: DOCETAXEL
     Dosage: 67.5 MG/M2, SINGLE
     Dates: start: 20140416, end: 20140416
  7. DOCETAXEL. [Suspect]
     Active Substance: DOCETAXEL
     Dosage: 60 MG/M2, SINGLE
     Dates: start: 20140625, end: 20140625
  8. TAXOTERE [Suspect]
     Active Substance: DOCETAXEL
     Dosage: UNK
     Dates: start: 20140305, end: 20140625
  9. DOCETAXEL. [Suspect]
     Active Substance: DOCETAXEL
     Indication: INVASIVE DUCTAL BREAST CARCINOMA
     Dosage: 67.5 MG/M2, SINGLE
     Dates: start: 20140326, end: 20140326
  10. DOCETAXEL. [Suspect]
     Active Substance: DOCETAXEL
     Dosage: UNK
     Dates: start: 20140305, end: 20140625
  11. DOCETAXEL. [Suspect]
     Active Substance: DOCETAXEL
     Dosage: 60 MG/M2, SINGLE
     Dates: start: 20140625, end: 20140625
  12. DOCETAXEL. [Suspect]
     Active Substance: DOCETAXEL
     Dosage: 67.5 MG/M2, SINGLE
     Dates: start: 20140515, end: 20140515
  13. NEOSAR [Concomitant]
     Active Substance: CYCLOPHOSPHAMIDE
     Indication: CHEMOTHERAPY
     Dosage: UNK
  14. ADRIAMYCIN [Concomitant]
     Active Substance: DOXORUBICIN HYDROCHLORIDE
     Indication: CHEMOTHERAPY
     Dosage: UNK
  15. DOCETAXEL. [Suspect]
     Active Substance: DOCETAXEL
     Dosage: UNK
     Dates: start: 20140305, end: 20140625
  16. DOCETAXEL. [Suspect]
     Active Substance: DOCETAXEL
     Indication: INVASIVE DUCTAL BREAST CARCINOMA
     Dosage: 67.5 MG/M2, SINGLE
     Dates: start: 20140326, end: 20140326
  17. DOCEFREZ [Suspect]
     Active Substance: DOCETAXEL ANHYDROUS
     Dosage: UNK
     Dates: start: 20140305, end: 20140625
  18. FEMARA [Concomitant]
     Active Substance: LETROZOLE
     Dosage: UNK
  19. DOCETAXEL. [Suspect]
     Active Substance: DOCETAXEL
     Indication: CHEMOTHERAPY
     Dosage: 75 MG/M2, SINGLE
     Dates: start: 20140305, end: 20140305
  20. DOCETAXEL. [Suspect]
     Active Substance: DOCETAXEL
     Dosage: 67.5 MG/M2, SINGLE
     Dates: start: 20140604, end: 20140604
  21. DOXIL [Concomitant]
     Active Substance: DOXORUBICIN HYDROCHLORIDE
     Indication: CHEMOTHERAPY
     Dosage: UNK
  22. CYTOXAN [Concomitant]
     Active Substance: CYCLOPHOSPHAMIDE
     Indication: CHEMOTHERAPY
     Dosage: UNK
  23. DOCETAXEL. [Suspect]
     Active Substance: DOCETAXEL
     Dosage: 67.5 MG/M2, SINGLE
     Dates: start: 20140604, end: 20140604

REACTIONS (5)
  - Alopecia [Recovered/Resolved]
  - Hair disorder [Recovered/Resolved]
  - Depression [Unknown]
  - Hair colour changes [Recovered/Resolved]
  - Hair texture abnormal [Recovered/Resolved]

NARRATIVE: CASE EVENT DATE: 20141225
